FAERS Safety Report 9268915 (Version 27)
Quarter: 2018Q4

REPORT INFORMATION
  Report Type: Report from Study
  Country: CA (occurrence: CA)
  Receive Date: 20130503
  Receipt Date: 20181011
  Transmission Date: 20190205
  Serious: Yes (Other)
  Sender: FDA-Public Use
  Company Number: CA-ROCHE-1185133

PATIENT
  Age: 53 Year
  Sex: Female
  Weight: 47.67 kg

DRUGS (13)
  1. LEFLUNOMIDE. [Concomitant]
     Active Substance: LEFLUNOMIDE
  2. D50W [Concomitant]
  3. METHYLPREDNISOLONE. [Concomitant]
     Active Substance: METHYLPREDNISOLONE
     Route: 042
     Dates: start: 20170919
  4. ARAVA [Concomitant]
     Active Substance: LEFLUNOMIDE
  5. ACETAMINOPHEN. [Concomitant]
     Active Substance: ACETAMINOPHEN
     Route: 048
     Dates: start: 20170919
  6. INSULIN [Concomitant]
     Active Substance: INSULIN NOS
  7. CYMBALTA [Concomitant]
     Active Substance: DULOXETINE HYDROCHLORIDE
  8. METHOTREXATE. [Concomitant]
     Active Substance: METHOTREXATE
  9. DIPHENHYDRAMINE HCL [Concomitant]
     Active Substance: DIPHENHYDRAMINE HYDROCHLORIDE
     Route: 048
     Dates: start: 20170919
  10. RITUXAN [Suspect]
     Active Substance: RITUXIMAB
     Indication: RHEUMATOID ARTHRITIS
     Route: 042
     Dates: start: 20170919
  11. ACTEMRA [Suspect]
     Active Substance: TOCILIZUMAB
     Indication: RHEUMATOID ARTHRITIS
     Dosage: DATE OF LAST INFUSION:/DEC/2012.
     Route: 042
     Dates: start: 20120523, end: 201708
  12. PREDNISONE. [Concomitant]
     Active Substance: PREDNISONE
  13. CRANBERRY. [Concomitant]
     Active Substance: CRANBERRY
     Route: 065

REACTIONS (27)
  - Kidney infection [Not Recovered/Not Resolved]
  - Limb injury [Not Recovered/Not Resolved]
  - Pharyngitis streptococcal [Recovered/Resolved]
  - Joint swelling [Unknown]
  - Weight increased [Recovering/Resolving]
  - Generalised tonic-clonic seizure [Recovered/Resolved]
  - Infusion related reaction [Unknown]
  - Localised infection [Recovering/Resolving]
  - Heart rate increased [Unknown]
  - Blood pressure increased [Unknown]
  - Respiratory disorder [Not Recovered/Not Resolved]
  - Fibromyalgia [Not Recovered/Not Resolved]
  - Eye infection [Not Recovered/Not Resolved]
  - Sjogren^s syndrome [Unknown]
  - Herpes zoster [Recovered/Resolved]
  - Drug ineffective [Unknown]
  - Malaise [Unknown]
  - Heart rate decreased [Unknown]
  - Pneumonia [Recovered/Resolved]
  - Hypotension [Unknown]
  - Cystitis [Not Recovered/Not Resolved]
  - Blood pressure diastolic decreased [Unknown]
  - Arthralgia [Not Recovered/Not Resolved]
  - Hypotension [Unknown]
  - Blood pressure diastolic decreased [Unknown]
  - Infection [Unknown]
  - C-reactive protein increased [Unknown]

NARRATIVE: CASE EVENT DATE: 2013
